FAERS Safety Report 5623701-6 (Version None)
Quarter: 2008Q1

REPORT INFORMATION
  Report Type: 
  Country: None (occurrence: None)
  Receive Date: 20080129
  Receipt Date: 20071101
  Transmission Date: 20080703
  Serious: Yes (Other)
  Sender: FDA-Public Use
  Company Number: WAES 0711USA02975

PATIENT

DRUGS (1)
  1. PRIMAXIN [Suspect]
     Indication: ANTIBIOTIC PROPHYLAXIS
     Dosage: IV

REACTIONS (1)
  - CONVULSION [None]
